FAERS Safety Report 7352762-1 (Version None)
Quarter: 2011Q1

REPORT INFORMATION
  Report Type: 
  Country: None (occurrence: None)
  Receive Date: 20110315
  Receipt Date: 20110304
  Transmission Date: 20110831
  Serious: Yes (Other)
  Sender: FDA-Public Use
  Company Number: HR-BAXTER-2011BH003460

PATIENT
  Age: 37 Year
  Sex: Female
  Weight: 90 kg

DRUGS (2)
  1. MEDROL [Concomitant]
     Indication: PREMEDICATION
     Dates: start: 20110118, end: 20110118
  2. GAMMAGARD LIQUID [Suspect]
     Indication: HYPOGAMMAGLOBULINAEMIA
     Route: 042
     Dates: start: 20110118, end: 20110118

REACTIONS (3)
  - HOT FLUSH [None]
  - DYSPNOEA [None]
  - CHOKING [None]
